FAERS Safety Report 23135586 (Version 3)
Quarter: 2025Q1

REPORT INFORMATION
  Report Type: Spontaneous
  Country: CA (occurrence: CA)
  Receive Date: 20231101
  Receipt Date: 20250325
  Transmission Date: 20250408
  Serious: No
  Sender: PFIZER
  Company Number: CA-PFIZER INC-202300348070

PATIENT
  Age: 30 Year
  Sex: Female
  Weight: 61 kg

DRUGS (3)
  1. CIBINQO [Suspect]
     Active Substance: ABROCITINIB
     Indication: Dermatitis atopic
     Dosage: 100 MG, 1X/DAY, FOR 2 WEEKS ON SAMPLES
     Route: 048
     Dates: start: 20231006, end: 20231020
  2. CIBINQO [Suspect]
     Active Substance: ABROCITINIB
     Dosage: 200 MG, 1X/DAY
     Route: 048
     Dates: start: 2023
  3. BETAMETHASONE [Concomitant]
     Active Substance: BETAMETHASONE

REACTIONS (1)
  - Acne [Recovering/Resolving]

NARRATIVE: CASE EVENT DATE: 20230101
